FAERS Safety Report 13742613 (Version 28)
Quarter: 2021Q4

REPORT INFORMATION
  Report Type: Spontaneous
  Country: US (occurrence: US)
  Receive Date: 20170711
  Receipt Date: 20211217
  Transmission Date: 20220303
  Serious: Yes (Other)
  Sender: FDA-Public Use
  Company Number: US-PFIZER INC-2017300984

PATIENT
  Age: 69 Year
  Sex: Male
  Weight: 80 kg

DRUGS (11)
  1. LYRICA [Suspect]
     Active Substance: PREGABALIN
     Indication: Plasma cell myeloma
     Dosage: UNK
  2. LYRICA [Suspect]
     Active Substance: PREGABALIN
     Indication: Neuralgia
     Dosage: 150 MG, 2X/DAY
     Route: 048
  3. LYRICA [Suspect]
     Active Substance: PREGABALIN
     Indication: Neoplasm malignant
     Dosage: UNK, 1X/DAY (AT NIGHT)
  4. LYRICA [Suspect]
     Active Substance: PREGABALIN
     Indication: Limb discomfort
  5. LYRICA [Suspect]
     Active Substance: PREGABALIN
     Indication: Nerve block
  6. LYRICA [Suspect]
     Active Substance: PREGABALIN
     Indication: Nerve injury
  7. LYRICA [Suspect]
     Active Substance: PREGABALIN
     Indication: Essential hypertension
  8. HYDROMORPHONE HCL [Concomitant]
     Active Substance: HYDROMORPHONE HYDROCHLORIDE
     Indication: Pain
     Dosage: 2 MG, AS NEEDED [THREE TIMES A DAY]
     Route: 048
     Dates: start: 2004
  9. HYDRALAZINE HYDROCHLORIDE [Concomitant]
     Active Substance: HYDRALAZINE HYDROCHLORIDE
     Indication: Blood pressure abnormal
     Dosage: 25 MG, 3X/DAY
     Route: 048
     Dates: start: 2012
  10. LEVOTHYROXINE [Concomitant]
     Active Substance: LEVOTHYROXINE
     Indication: Thyroid disorder
     Dosage: 150 UG, DAILY
     Route: 048
     Dates: start: 2005
  11. LISINOPRIL [Concomitant]
     Active Substance: LISINOPRIL
     Indication: Blood pressure abnormal
     Dosage: 20 MG, DAILY
     Route: 048
     Dates: start: 2012

REACTIONS (12)
  - Bone disorder [Unknown]
  - Bronchiectasis [Unknown]
  - Pain [Unknown]
  - Middle insomnia [Unknown]
  - Muscle spasms [Unknown]
  - Hypercholesterolaemia [Unknown]
  - Hyponatraemia [Unknown]
  - Sciatica [Unknown]
  - Limb discomfort [Unknown]
  - Movement disorder [Unknown]
  - Dyskinesia [Unknown]
  - Infection [Recovering/Resolving]
